FAERS Safety Report 22064313 (Version 1)
Quarter: 2023Q1

REPORT INFORMATION
  Report Type: Spontaneous
  Country: CN (occurrence: CN)
  Receive Date: 20230306
  Receipt Date: 20230306
  Transmission Date: 20230417
  Serious: Yes (Disabling)
  Sender: FDA-Public Use
  Company Number: CN-PFIZER INC-PV202300040302

PATIENT
  Age: 28 Year
  Sex: Female
  Weight: 50 kg

DRUGS (1)
  1. METHOTREXATE SODIUM [Suspect]
     Active Substance: METHOTREXATE SODIUM
     Indication: Leukaemia
     Dosage: 5 G, 1X/DAY
     Route: 041
     Dates: start: 20230212, end: 20230213

REACTIONS (5)
  - Renal impairment [Recovering/Resolving]
  - Vomiting [Recovering/Resolving]
  - Regurgitation [Recovering/Resolving]
  - Nausea [Recovering/Resolving]
  - Back pain [Recovering/Resolving]

NARRATIVE: CASE EVENT DATE: 20230215
